FAERS Safety Report 12603123 (Version 2)
Quarter: 2016Q3

REPORT INFORMATION
  Report Type: Spontaneous
  Country: IT (occurrence: IT)
  Receive Date: 20160728
  Receipt Date: 20160804
  Transmission Date: 20161109
  Serious: Yes (Other)
  Sender: FDA-Public Use
  Company Number: PHHY2015IT159383

PATIENT
  Age: 50 Year
  Sex: Female
  Weight: 58 kg

DRUGS (1)
  1. VOLTAREN [Suspect]
     Active Substance: DICLOFENAC SODIUM
     Indication: SCIATICA
     Dosage: 1 DF, QD
     Route: 030
     Dates: start: 20151030, end: 20151030

REACTIONS (1)
  - Injection site necrosis [Recovered/Resolved with Sequelae]

NARRATIVE: CASE EVENT DATE: 20151030
